FAERS Safety Report 5242537-1 (Version None)
Quarter: 2007Q1

REPORT INFORMATION
  Report Type: 
  Country: None (occurrence: None)
  Receive Date: 20070214
  Receipt Date: 20070202
  Transmission Date: 20070707
  Serious: Yes (Death, Other)
  Sender: FDA-Public Use
  Company Number: 163-21880-07010895

PATIENT
  Age: 67 Year
  Sex: Female

DRUGS (4)
  1. REVLIMID [Suspect]
     Indication: AMYLOIDOSIS
     Dosage: 10 MG, 1 IN 1 D, ORAL
     Route: 048
     Dates: start: 20061201, end: 20061223
  2. REVLIMID [Suspect]
     Indication: GAMMOPATHY
     Dosage: 10 MG, 1 IN 1 D, ORAL
     Route: 048
     Dates: start: 20061201, end: 20061223
  3. PERCOCET [Concomitant]
  4. OXYCONTIN [Concomitant]

REACTIONS (4)
  - CARDIAC FAILURE [None]
  - CELLULITIS [None]
  - DISEASE PROGRESSION [None]
  - FLUID OVERLOAD [None]
